FAERS Safety Report 7941387-2 (Version None)
Quarter: 2011Q4

REPORT INFORMATION
  Report Type: 
  Country: None (occurrence: None)
  Receive Date: 20111122
  Receipt Date: 20111107
  Transmission Date: 20120403
  Serious: Yes (Death)
  Sender: FDA-Public Use
  Company Number: 2011-486

PATIENT
  Age: 67 Year
  Sex: Female

DRUGS (18)
  1. GUAIFENESIN [Concomitant]
  2. MORPHINE SULFATE [Concomitant]
  3. OXYGEN (OXYGEN) [Concomitant]
  4. TOBRAMYCIN [Concomitant]
  5. ASPIRIN [Concomitant]
  6. NAMENDA (MEMANTINE HYDROHCLORIDE) [Concomitant]
  7. SYNTHROID [Concomitant]
  8. ESKALITH [Concomitant]
  9. DEPAKOTE [Concomitant]
  10. ATIVAN [Concomitant]
  11. COLECALCIFEROCAPS (COLECALCIFEROL) [Concomitant]
  12. TYLENOL /00020001/ (PARACETAMOL) [Concomitant]
  13. FAZACLO ODT [Suspect]
     Dosage: 37.5 MG, QD, ORAL
     Route: 048
     Dates: start: 20110427, end: 20111106
  14. CRANBERRY (VACCINIUM MACROCARPON) [Concomitant]
  15. ARICEPT [Concomitant]
  16. PULMOZYME [Concomitant]
  17. ALBUTEROL [Concomitant]
  18. RISPERDAL [Concomitant]

REACTIONS (1)
  - DEATH [None]
